FAERS Safety Report 9915518 (Version 1)
Quarter: 2014Q1

REPORT INFORMATION
  Report Type: Spontaneous
  Country: US (occurrence: US)
  Receive Date: 20140221
  Receipt Date: 20140221
  Transmission Date: 20141002
  Serious: Yes (Death, Hospitalization)
  Sender: FDA-Public Use
  Company Number: US-BRISTOL-MYERS SQUIBB COMPANY-20214391

PATIENT
  Age: 71 Year
  Sex: Male

DRUGS (16)
  1. WARFARIN SODIUM [Suspect]
     Indication: PULMONARY EMBOLISM
     Dates: start: 20130501, end: 20130707
  2. LOVENOX [Suspect]
     Indication: PULMONARY EMBOLISM
     Dates: start: 20130101, end: 20130707
  3. MORPHINE SULFATE [Concomitant]
     Indication: ARTHRALGIA
     Dates: start: 20130629, end: 20130707
  4. MORPHINE SULFATE [Concomitant]
     Indication: BONE PAIN
     Dates: start: 20130629, end: 20130707
  5. VITAMIN B COMPLEX [Concomitant]
     Dates: start: 20130514, end: 20130707
  6. COLACE [Concomitant]
     Indication: CONSTIPATION PROPHYLAXIS
     Dates: start: 20130514, end: 20130707
  7. LORAZEPAM [Concomitant]
     Indication: ANXIETY
     Dates: start: 20130506, end: 20130707
  8. ONDANSETRON [Concomitant]
     Indication: PROPHYLAXIS OF NAUSEA AND VOMITING
     Dates: start: 20111025, end: 20130707
  9. OXYCODONE [Concomitant]
     Indication: PAIN PROPHYLAXIS
     Dates: start: 20130530, end: 20130707
  10. VITAMIN B12 [Concomitant]
     Dates: start: 20111025, end: 20130707
  11. PAROXETINE [Concomitant]
     Indication: DEPRESSION
     Dates: start: 20111025, end: 20130707
  12. METOPROLOL [Concomitant]
     Indication: HYPERTENSION
     Dates: start: 20110823, end: 20130707
  13. DIPHENOXYLATE + ATROPINE [Concomitant]
     Indication: PROPHYLAXIS AGAINST DIARRHOEA
     Dates: start: 20111212, end: 20130707
  14. VITAMIN D3 [Concomitant]
     Dates: start: 20130514, end: 20130707
  15. TYLENOL [Concomitant]
     Indication: ARTHRALGIA
     Dates: start: 20130629, end: 20130707
  16. TYLENOL [Concomitant]
     Indication: BONE PAIN
     Dates: start: 20130629, end: 20130707

REACTIONS (4)
  - Haemorrhage intracranial [Fatal]
  - Renal failure acute [Fatal]
  - Acidosis [Fatal]
  - Cardio-respiratory arrest [Fatal]
